FAERS Safety Report 9840495 (Version 4)
Quarter: 2014Q2

REPORT INFORMATION
  Report Type: Spontaneous
  Country: JP (occurrence: JP)
  Receive Date: 20140124
  Receipt Date: 20140414
  Transmission Date: 20141212
  Serious: Yes (Death, Other)
  Sender: FDA-Public Use
  Company Number: JP-009507513-1401JPN009602

PATIENT
  Age: 92 Year
  Sex: Female
  Weight: 40 kg

DRUGS (8)
  1. STROMECTOL TABLETS 3 MG [Suspect]
     Indication: ACARODERMATITIS
     Dosage: 6 MG, QD
     Route: 048
     Dates: start: 20131218, end: 20131218
  2. STROMECTOL TABLETS 3 MG [Suspect]
     Dosage: 6 MG, QD
     Route: 048
     Dates: start: 20131211, end: 20131211
  3. FAMVIR [Suspect]
     Indication: HERPES ZOSTER
     Dosage: 250 MG, TID
     Route: 048
     Dates: start: 20140106, end: 20140112
  4. LOXONIN [Concomitant]
     Dosage: DAILY DOSE UNKNOWN
     Route: 048
  5. DIGOSIN [Concomitant]
     Dosage: 0.0625 MG, QD
     Route: 048
  6. BAYASPIRIN [Concomitant]
     Dosage: 100 MG, QD
     Route: 048
  7. AMLODIPINE [Concomitant]
     Dosage: 5 MG, QD
     Route: 048
  8. SEROQUEL [Concomitant]
     Dosage: 25 MG, TID
     Route: 048

REACTIONS (6)
  - Renal failure [Fatal]
  - Hepatic failure [Fatal]
  - Multi-organ failure [Fatal]
  - Hyperkalaemia [Fatal]
  - Thrombocytopenia [Fatal]
  - Herpes zoster [Fatal]
